FAERS Safety Report 23881762 (Version 1)
Quarter: 2024Q2

REPORT INFORMATION
  Report Type: Spontaneous
  Country: US (occurrence: US)
  Receive Date: 20240521
  Receipt Date: 20240521
  Transmission Date: 20240716
  Serious: No
  Sender: FDA-Public Use
  Company Number: US-SA-SAC20240517000147

PATIENT
  Age: 40 Year
  Sex: Male
  Weight: 115 kg

DRUGS (12)
  1. DUPIXENT [Suspect]
     Active Substance: DUPILUMAB
     Indication: Asthma
     Dosage: 300 MG, QOW
     Route: 058
  2. TRELEGY ELLIPTA [Concomitant]
     Active Substance: FLUTICASONE FUROATE\UMECLIDINIUM BROMIDE\VILANTEROL TRIFENATATE
  3. ALBUTEROL SULFATE [Concomitant]
     Active Substance: ALBUTEROL SULFATE
  4. SUMATRIPTAN SUCCINATE [Concomitant]
     Active Substance: SUMATRIPTAN SUCCINATE
  5. FARXIGA [Concomitant]
     Active Substance: DAPAGLIFLOZIN PROPANEDIOL
  6. LISINOPRIL [Concomitant]
     Active Substance: LISINOPRIL
  7. ALBUTEROL SULFATE [Concomitant]
     Active Substance: ALBUTEROL SULFATE
  8. METHOCARBAMOL [Concomitant]
     Active Substance: METHOCARBAMOL
     Dosage: UNK
  9. PROZAC [Concomitant]
     Active Substance: FLUOXETINE HYDROCHLORIDE
  10. ALLEGRA D 12HR [Concomitant]
  11. ACETAMINOPHEN\HYDROCODONE [Concomitant]
     Active Substance: ACETAMINOPHEN\HYDROCODONE
     Dosage: UNK
  12. EPIPEN [Concomitant]
     Active Substance: EPINEPHRINE

REACTIONS (4)
  - Discomfort [Unknown]
  - Upper respiratory tract infection [Unknown]
  - Cough [Unknown]
  - Arthralgia [Unknown]

NARRATIVE: CASE EVENT DATE: 20240301
